FAERS Safety Report 6465356-7 (Version None)
Quarter: 2009Q4

REPORT INFORMATION
  Report Type: 
  Country: None (occurrence: None)
  Receive Date: 20091201
  Receipt Date: 20090811
  Transmission Date: 20100525
  Serious: No
  Sender: FDA-Public Use
  Company Number: US-AMGEN-KDL277261

PATIENT
  Sex: Female
  Weight: 55.8 kg

DRUGS (2)
  1. ENBREL [Suspect]
     Indication: RHEUMATOID ARTHRITIS
     Route: 058
     Dates: start: 20080330, end: 20090516
  2. METHOTREXATE [Concomitant]
     Dates: start: 20070401

REACTIONS (5)
  - BRONCHITIS [None]
  - DRUG INEFFECTIVE [None]
  - DRY EYE [None]
  - LIVER FUNCTION TEST ABNORMAL [None]
  - VISION BLURRED [None]
